FAERS Safety Report 6543514-0 (Version None)
Quarter: 2010Q1

REPORT INFORMATION
  Report Type: 
  Country: None (occurrence: None)
  Receive Date: 20100120
  Receipt Date: 20100114
  Transmission Date: 20100710
  Serious: Yes (Death)
  Sender: FDA-Public Use
  Company Number: B0625950A

PATIENT
  Age: 39 Year
  Sex: Female
  Weight: 26 kg

DRUGS (6)
  1. SERETIDE [Suspect]
     Route: 055
     Dates: start: 20040205
  2. MOMETASONE FUROATE [Concomitant]
  3. OILATUM [Concomitant]
  4. ALBUTEROL SULFATE AUTOHALER [Concomitant]
     Route: 055
  5. PREDNISOLONE [Concomitant]
     Dates: start: 20040804
  6. ALBUTEROL SULFATE AUTOHALER [Concomitant]
     Dates: start: 20040804

REACTIONS (2)
  - ASTHMA [None]
  - CIRCULATORY COLLAPSE [None]
